FAERS Safety Report 5979450-8 (Version None)
Quarter: 2008Q4

REPORT INFORMATION
  Report Type: 
  Country: None (occurrence: None)
  Receive Date: 20081204
  Receipt Date: 20081125
  Transmission Date: 20090506
  Serious: Yes (Death, Hospitalization, Other)
  Sender: FDA-Public Use
  Company Number: NL-ABBOTT-08P-114-0442260-00

PATIENT
  Sex: Female

DRUGS (16)
  1. HUMIRA [Suspect]
     Indication: RHEUMATOID ARTHRITIS
     Route: 058
     Dates: start: 20060506, end: 20080110
  2. PHENPROCOUMON [Concomitant]
     Indication: ARRHYTHMIA
     Route: 048
     Dates: start: 20070326, end: 20080110
  3. DIGOXIN [Concomitant]
     Indication: ATRIAL FIBRILLATION
     Route: 048
     Dates: start: 20070326, end: 20080110
  4. DIGOXIN [Concomitant]
     Indication: HYPERTENSION
  5. METOPROLOL SUCCINATE [Concomitant]
     Indication: ATRIAL FIBRILLATION
     Route: 048
     Dates: start: 20071116, end: 20080110
  6. METOPROLOL SUCCINATE [Concomitant]
     Indication: HYPERTENSION
  7. NIFEDIPINE [Concomitant]
     Indication: ATRIAL FIBRILLATION
     Route: 048
     Dates: start: 20071114, end: 20080110
  8. NIFEDIPINE [Concomitant]
     Indication: HYPERTENSION
  9. HYDROCHLOROTHIAZIDE [Concomitant]
     Indication: ATRIAL FIBRILLATION
     Route: 048
     Dates: start: 20070101, end: 20080110
  10. HYDROCHLOROTHIAZIDE [Concomitant]
     Indication: HYPERTENSION
  11. PERINDOPRIL [Concomitant]
     Indication: ATRIAL FIBRILLATION
     Route: 048
     Dates: start: 20070416, end: 20080110
  12. PERINDOPRIL [Concomitant]
     Indication: HYPERTENSION
  13. ARTHROTEC [Concomitant]
     Indication: RHEUMATOID ARTHRITIS
     Route: 048
     Dates: start: 19960101, end: 20080110
  14. FOLIC ACID [Concomitant]
     Indication: PROPHYLAXIS
     Route: 048
     Dates: start: 19990101, end: 20080110
  15. METHOTREXATE [Concomitant]
     Indication: RHEUMATOID ARTHRITIS
     Route: 048
     Dates: start: 19990101, end: 20080110
  16. COMMERICIAL HUMIRA [Concomitant]
     Indication: RHEUMATOID ARTHRITIS
     Dates: start: 20040217

REACTIONS (4)
  - ATRIAL FIBRILLATION [None]
  - CEREBROVASCULAR ACCIDENT [None]
  - RENAL FAILURE ACUTE [None]
  - SEPSIS [None]
